FAERS Safety Report 7494973-0 (Version None)
Quarter: 2011Q2

REPORT INFORMATION
  Report Type: 
  Country: None (occurrence: None)
  Receive Date: 20110520
  Receipt Date: 20110504
  Transmission Date: 20111010
  Serious: No
  Sender: FDA-Public Use
  Company Number: US-B.I. PHARMACEUTICALS,INC./RIDGEFIELD-2011-BP-07593BP

PATIENT
  Sex: Male

DRUGS (7)
  1. PRADAXA [Suspect]
     Indication: ATRIAL FIBRILLATION
     Dosage: 300 MG
     Dates: start: 20110207
  2. SYNTHROID [Concomitant]
     Dosage: 100 MG
  3. ASPIRIN [Concomitant]
     Dosage: 81 MG
  4. SIMVASTATIN [Concomitant]
     Dosage: 40 MG
  5. CARVEDILOL [Concomitant]
     Dosage: 12.5 MG
  6. AVAPRO [Concomitant]
     Dosage: 150 MG
  7. FLOMAX [Concomitant]

REACTIONS (4)
  - OCULAR HYPERAEMIA [None]
  - TINNITUS [None]
  - PRURITUS [None]
  - BURNING SENSATION [None]
